FAERS Safety Report 9249791 (Version 4)
Quarter: 2014Q1

REPORT INFORMATION
  Report Type: Report from Study
  Country: CN (occurrence: CN)
  Receive Date: 20130423
  Receipt Date: 20140314
  Transmission Date: 20141002
  Serious: Yes (Death, Life-Threatening, Hospitalization, Other)
  Sender: FDA-Public Use
  Company Number: CN-CELGENEUS-035-CCAZA-13033485

PATIENT
  Age: 52 Year
  Sex: Male
  Weight: 63 kg

DRUGS (22)
  1. AZACITIDINE INJECTABLE [Suspect]
     Indication: MYELODYSPLASTIC SYNDROME
     Route: 058
     Dates: start: 20121016, end: 20121022
  2. AZACITIDINE INJECTABLE [Suspect]
     Dosage: 50 MILLIGRAM/SQ. METER
     Route: 058
     Dates: start: 20130225, end: 20130303
  3. AZACITIDINE INJECTABLE [Suspect]
     Dosage: 50 MILLIGRAM/SQ. METER
     Route: 058
     Dates: end: 20130420
  4. GRANULOCYTE COLONY-STIMULATING FACTOR NOS [Concomitant]
     Indication: WHITE BLOOD CELL COUNT DECREASED
     Dosage: 300 MICROGRAM
     Route: 058
     Dates: start: 20130313, end: 20130313
  5. GRANULOCYTE COLONY-STIMULATING FACTOR NOS [Concomitant]
     Dosage: 300 MICROGRAM
     Route: 058
     Dates: start: 20130318, end: 20130318
  6. GRANULOCYTE COLONY-STIMULATING FACTOR NOS [Concomitant]
     Dosage: 300 MICROGRAM
     Route: 058
     Dates: start: 20130327, end: 20130328
  7. GRANULOCYTE COLONY-STIMULATING FACTOR NOS [Concomitant]
     Dosage: 200 MICROGRAM
     Route: 058
     Dates: start: 20130330, end: 20130330
  8. GRANULOCYTE COLONY-STIMULATING FACTOR NOS [Concomitant]
     Dosage: 300 MICROGRAM
     Route: 058
     Dates: start: 20130401, end: 20130407
  9. GRANULOCYTE COLONY-STIMULATING FACTOR NOS [Concomitant]
     Dosage: 300 MICROGRAM
     Route: 058
     Dates: start: 20130409, end: 20130409
  10. GRANULOCYTE COLONY-STIMULATING FACTOR NOS [Concomitant]
     Dosage: 300 MICROGRAM
     Route: 058
     Dates: start: 20130415, end: 20130415
  11. VALACICLOVIR [Concomitant]
     Indication: ANTIVIRAL PROPHYLAXIS
     Dosage: 600 MILLIGRAM
     Route: 048
     Dates: start: 20130313, end: 20130419
  12. VALACICLOVIR [Concomitant]
     Indication: RESPIRATORY DISORDER
     Route: 048
  13. ONDASETRON [Concomitant]
     Indication: PROPHYLAXIS AGAINST GASTROINTESTINAL ULCER
     Dosage: 8 MILLIGRAM
     Route: 041
     Dates: start: 20130225, end: 20130303
  14. CEFACLOR [Concomitant]
     Indication: ANTIINFLAMMATORY THERAPY
     Dosage: 750 MILLIGRAM
     Route: 048
     Dates: start: 20130313, end: 20130324
  15. CEFACLOR [Concomitant]
     Indication: RESPIRATORY DISORDER
     Route: 048
  16. METHOXYPHENAMINE [Concomitant]
     Indication: COUGH
     Dosage: 6 TABLET
     Route: 048
     Dates: start: 20130318, end: 20130324
  17. CARBAZOCHROME [Concomitant]
     Indication: MOUTH HAEMORRHAGE
     Dosage: 15 MILLIGRAM
     Route: 048
     Dates: start: 20130313, end: 20130419
  18. SOLUMEDROL [Concomitant]
     Indication: ANTIINFLAMMATORY THERAPY
     Dosage: 80 MILLIGRAM
     Route: 041
     Dates: start: 20130413, end: 20130416
  19. SOLUMEDROL [Concomitant]
     Indication: PLATELET TRANSFUSION
     Dosage: 40 MILLIGRAM
     Route: 041
     Dates: start: 20130412, end: 20130412
  20. SOLUMEDROL [Concomitant]
     Dosage: 40 MILLIGRAM
     Route: 041
     Dates: start: 20130417, end: 20130417
  21. SOLUMEDROL [Concomitant]
     Dosage: 40 MILLIGRAM
     Route: 041
     Dates: start: 20130418, end: 20130418
  22. SOLUMEDROL [Concomitant]
     Dosage: 20 MILLIGRAM
     Route: 041
     Dates: start: 20130417, end: 20130418

REACTIONS (3)
  - Gastrointestinal haemorrhage [Fatal]
  - Pneumonia [Not Recovered/Not Resolved]
  - Thrombocytopenia [Not Recovered/Not Resolved]
